FAERS Safety Report 8583566-X (Version None)
Quarter: 2012Q3

REPORT INFORMATION
  Report Type: 
  Country: None (occurrence: None)
  Receive Date: 20120809
  Receipt Date: 20120802
  Transmission Date: 20120928
  Serious: Yes (Other)
  Sender: FDA-Public Use
  Company Number: US-UCBSA-063152

PATIENT
  Age: 35 Year
  Sex: Male

DRUGS (1)
  1. CIMZIA [Suspect]
     Indication: CROHN'S DISEASE
     Dates: start: 20120203

REACTIONS (2)
  - HERPES ZOSTER [None]
  - NASOPHARYNGITIS [None]
